FAERS Safety Report 5656145-1 (Version None)
Quarter: 2008Q1

REPORT INFORMATION
  Report Type: 
  Country: None (occurrence: None)
  Receive Date: 20080305
  Receipt Date: 20080220
  Transmission Date: 20080703
  Serious: Yes (Other)
  Sender: FDA-Public Use
  Company Number: 18402

PATIENT
  Age: 14 Year
  Sex: Female

DRUGS (1)
  1. METHOTREXATE [Suspect]
     Indication: ACUTE MYELOID LEUKAEMIA
     Dosage: 12 MG IT
     Route: 037

REACTIONS (6)
  - ANXIETY [None]
  - CRYING [None]
  - DYSPHASIA [None]
  - HEMIPARESIS [None]
  - INAPPROPRIATE AFFECT [None]
  - TOXIC ENCEPHALOPATHY [None]
